FAERS Safety Report 26187326 (Version 1)
Quarter: 2025Q4

REPORT INFORMATION
  Report Type: Spontaneous
  Country: US (occurrence: US)
  Receive Date: 20251222
  Receipt Date: 20251222
  Transmission Date: 20260118
  Serious: Yes (Other)
  Sender: DAIICHI
  Company Number: US-DAIICHI SANKYO, INC.-DS-2025-184246-USAA

PATIENT
  Sex: Female

DRUGS (1)
  1. TURALIO [Suspect]
     Active Substance: PEXIDARTINIB HYDROCHLORIDE
     Indication: Synovitis
     Dosage: 125 MG, BID
     Route: 048
     Dates: start: 20201021

REACTIONS (3)
  - Plantar fasciitis [Not Recovered/Not Resolved]
  - Tarsal tunnel syndrome [Not Recovered/Not Resolved]
  - Synovial cyst [Not Recovered/Not Resolved]
